FAERS Safety Report 8495365-8 (Version None)
Quarter: 2012Q2

REPORT INFORMATION
  Report Type: 
  Country: None (occurrence: None)
  Receive Date: 20120628
  Receipt Date: 20120612
  Transmission Date: 20120825
  Serious: Yes (Other)
  Sender: FDA-Public Use
  Company Number: 2011MA000131

PATIENT
  Sex: Female

DRUGS (27)
  1. BETAMETHASONE [Concomitant]
  2. PREMPRO [Concomitant]
  3. DOXYCYCLINE [Concomitant]
  4. CYMBALTA [Concomitant]
  5. AMOXICILLIN [Concomitant]
  6. ALPRAZOLAM [Concomitant]
  7. CEPHALEXIN [Concomitant]
  8. OMEPRAZOLE [Concomitant]
  9. MIRAPEX [Concomitant]
  10. CLOBETASOL PROPIONATE [Concomitant]
  11. HYDROCODONE/ACTAMINOPHEN [Concomitant]
  12. CIPROFLOXACIN [Concomitant]
  13. FOLIC ACID [Concomitant]
  14. AZITHROMYCIN [Concomitant]
  15. METHOTREXATE [Concomitant]
  16. PRILOSEC [Concomitant]
  17. FLUCONAZOLE [Concomitant]
  18. TEMAZEPAM [Concomitant]
  19. LYRICA [Concomitant]
  20. BUPROPION HYDROCHLORIDE [Concomitant]
  21. CHANTIX [Concomitant]
  22. TOPAMAX [Concomitant]
  23. BACLOFEN [Concomitant]
  24. METOCLOPRAMIDE [Suspect]
     Dosage: 10 MG; UNK; PO
     Route: 048
     Dates: start: 20070702, end: 20090316
  25. PREVACID [Concomitant]
  26. TRAZODONE HYDROCHLORIDE [Concomitant]
  27. OMEPRAZOLE [Concomitant]

REACTIONS (8)
  - RADICULITIS BRACHIAL [None]
  - RESTLESS LEGS SYNDROME [None]
  - EMOTIONAL DISORDER [None]
  - ANAEMIA VITAMIN B12 DEFICIENCY [None]
  - INCORRECT DRUG ADMINISTRATION DURATION [None]
  - RADICULITIS [None]
  - ECONOMIC PROBLEM [None]
  - DYSKINESIA [None]
